FAERS Safety Report 5003180-2 (Version None)
Quarter: 2006Q2

REPORT INFORMATION
  Report Type: 
  Country: None (occurrence: None)
  Receive Date: 20060512
  Receipt Date: 20060428
  Transmission Date: 20061013
  Serious: Yes (Other)
  Sender: FDA-Public Use
  Company Number: GXKR2006US02442

PATIENT
  Age: 60 Year
  Sex: Male

DRUGS (2)
  1. PACLITAXEL [Suspect]
     Indication: CHONDROSARCOMA
     Dosage: 90 MG/M2, INTRAVENOUS
     Route: 042
     Dates: start: 20020212, end: 20040415
  2. CIPROFLOXACIN [Suspect]
     Indication: CHONDROSARCOMA
     Dosage: 750 MG, BID, ORAL
     Route: 048
     Dates: start: 20020212

REACTIONS (2)
  - DISEASE PROGRESSION [None]
  - NEUROPATHY PERIPHERAL [None]
